FAERS Safety Report 20391735 (Version 1)
Quarter: 2022Q1

REPORT INFORMATION
  Report Type: Report from Study
  Country: US (occurrence: US)
  Receive Date: 20220128
  Receipt Date: 20220128
  Transmission Date: 20220423
  Serious: Yes (Hospitalization, Other)
  Sender: FDA-Public Use
  Company Number: US-BRISTOL-MYERS SQUIBB COMPANY-BMS-2022-009850

PATIENT
  Age: 54 Year
  Sex: Male
  Weight: 73.3 kg

DRUGS (3)
  1. NIVOLUMAB [Suspect]
     Active Substance: NIVOLUMAB
     Indication: Small cell lung cancer recurrent
     Dosage: 1 MILLIGRAM/KILOGRAM, Q3WK
     Route: 042
     Dates: start: 20211215, end: 20220105
  2. IPILIMUMAB [Suspect]
     Active Substance: IPILIMUMAB
     Indication: Small cell lung cancer recurrent
     Dosage: 3 MILLIGRAM/KILOGRAM, Q3WK
     Route: 042
     Dates: start: 20211215, end: 20220105
  3. PLINABULIN [Suspect]
     Active Substance: PLINABULIN
     Indication: Small cell lung cancer recurrent
     Dosage: 30 MILLIGRAM/SQ. METER, Q3WK
     Route: 042
     Dates: start: 20211215, end: 20220105

REACTIONS (2)
  - Constipation [Recovered/Resolved]
  - Urinary retention [Unknown]

NARRATIVE: CASE EVENT DATE: 20220114
